FAERS Safety Report 6240061-0 (Version None)
Quarter: 2009Q2

REPORT INFORMATION
  Report Type: 
  Country: None (occurrence: None)
  Receive Date: 20090623
  Receipt Date: 20090616
  Transmission Date: 20091009
  Serious: Yes (Other)
  Sender: FDA-Public Use
  Company Number: SK-ROCHE-639002

PATIENT
  Sex: Male

DRUGS (3)
  1. XELODA [Suspect]
     Indication: DRUG USE FOR UNKNOWN INDICATION
     Route: 065
  2. AVASTIN [Suspect]
     Indication: DRUG USE FOR UNKNOWN INDICATION
     Route: 065
  3. OXALIPLATIN [Concomitant]
     Dosage: DRUG NAME: OXALIPLATINA

REACTIONS (2)
  - ENTEROVESICAL FISTULA [None]
  - LARGE INTESTINE PERFORATION [None]
